FAERS Safety Report 19759715 (Version 1)
Quarter: 2021Q3

REPORT INFORMATION
  Report Type: Spontaneous
  Country: CA (occurrence: CA)
  Receive Date: 20210830
  Receipt Date: 20210830
  Transmission Date: 20211014
  Serious: Yes (Life-Threatening, Hospitalization, Other)
  Sender: FDA-Public Use
  Company Number: CA-AUROBINDO-AUR-APL-2021-036566

PATIENT
  Age: 36 Year
  Sex: Female

DRUGS (11)
  1. PREGABALIN CAPSULES [Suspect]
     Active Substance: PREGABALIN
     Indication: MUSCULOSKELETAL PAIN
     Dosage: 150 MILLIGRAM
     Route: 048
  2. TRIAZOLAM. [Suspect]
     Active Substance: TRIAZOLAM
     Indication: MUSCULOSKELETAL PAIN
     Dosage: 0.25 MILLIGRAM
     Route: 048
  3. TRAMADOL HYDROCHLORIDE. [Suspect]
     Active Substance: TRAMADOL HYDROCHLORIDE
     Indication: BACK PAIN
     Dosage: 187.5 MILLIGRAM
     Route: 048
  4. ACETAMINOPHENE [Suspect]
     Active Substance: ACETAMINOPHEN
     Indication: BACK PAIN
     Dosage: 325 MILLIGRAM
     Route: 048
  5. DULOXETINE SANDOZ [Suspect]
     Active Substance: DULOXETINE
     Indication: MUSCULOSKELETAL PAIN
     Dosage: 60 MILLIGRAM
     Route: 048
  6. TRAMADOL HYDROCHLORIDE. [Suspect]
     Active Substance: TRAMADOL HYDROCHLORIDE
     Indication: MUSCULOSKELETAL PAIN
     Dosage: 187.5 MILLIGRAM
     Route: 048
  7. AMITRIPTYLINE HYDROCHLORIDE;PERPHENAZINE [Suspect]
     Active Substance: AMITRIPTYLINE HYDROCHLORIDE\PERPHENAZINE
     Indication: BACK PAIN
     Dosage: 10 MILLIGRAM
     Route: 065
  8. DULOXETINE SANDOZ [Suspect]
     Active Substance: DULOXETINE
     Indication: BACK PAIN
     Dosage: 60 MILLIGRAM
     Route: 048
  9. ACETAMINOPHENE [Suspect]
     Active Substance: ACETAMINOPHEN
     Indication: MUSCULOSKELETAL PAIN
     Dosage: 325 MILLIGRAM
     Route: 048
  10. AMITRIPTYLINE HYDROCHLORIDE;PERPHENAZINE [Suspect]
     Active Substance: AMITRIPTYLINE HYDROCHLORIDE\PERPHENAZINE
     Indication: MUSCULOSKELETAL PAIN
     Dosage: 10 MILLIGRAM
     Route: 065
  11. TRIAZOLAM. [Suspect]
     Active Substance: TRIAZOLAM
     Indication: BACK PAIN
     Dosage: 0.25 MILLIGRAM
     Route: 048

REACTIONS (2)
  - Serotonin syndrome [Recovered/Resolved]
  - Labelled drug-drug interaction issue [Recovered/Resolved]
